FAERS Safety Report 9186573 (Version 1)
Quarter: 2013Q1

REPORT INFORMATION
  Report Type: Spontaneous
  Country: FR (occurrence: FR)
  Receive Date: 20130325
  Receipt Date: 20130325
  Transmission Date: 20140127
  Serious: Yes (Hospitalization)
  Sender: FDA-Public Use
  Company Number: FR-ASTRAZENECA-2013SE17648

PATIENT
  Age: 55 Year
  Sex: Male

DRUGS (4)
  1. BRILIQUE [Suspect]
     Indication: ACUTE CORONARY SYNDROME
     Route: 048
     Dates: start: 201302, end: 201302
  2. COVERSYL [Suspect]
     Route: 065
     Dates: end: 201302
  3. ASPIRINE [Concomitant]
     Indication: ACUTE CORONARY SYNDROME
  4. TAHOR [Concomitant]

REACTIONS (1)
  - Urticaria [Recovered/Resolved]
